FAERS Safety Report 5923479-2 (Version None)
Quarter: 2008Q4

REPORT INFORMATION
  Report Type: 
  Country: None (occurrence: None)
  Receive Date: 20081015
  Receipt Date: 20081007
  Transmission Date: 20090506
  Serious: Yes (Hospitalization)
  Sender: FDA-Public Use
  Company Number: 2008SP016409

PATIENT
  Age: 60 Year
  Sex: Male
  Weight: 75.2971 kg

DRUGS (6)
  1. PEG-INTRON [Suspect]
     Indication: HEPATITIS C
     Dates: start: 20071026, end: 20080725
  2. RIBAVIRIN [Suspect]
     Indication: HEPATITIS C
     Dates: start: 20071026, end: 20080725
  3. ACCUPRIL [Concomitant]
  4. ASPIRIN [Concomitant]
  5. DARVOCET [Concomitant]
  6. ALLOPURINOL [Concomitant]

REACTIONS (7)
  - CONSTIPATION [None]
  - CYTOMEGALOVIRUS OESOPHAGITIS [None]
  - DRUG DOSE OMISSION [None]
  - GASTROOESOPHAGEAL REFLUX DISEASE [None]
  - PERIVASCULAR DERMATITIS [None]
  - TEMPORAL ARTERITIS [None]
  - WEIGHT INCREASED [None]
